FAERS Safety Report 19987780 (Version 1)
Quarter: 2021Q4

REPORT INFORMATION
  Report Type: Spontaneous
  Country: US (occurrence: US)
  Receive Date: 20211022
  Receipt Date: 20211022
  Transmission Date: 20220303
  Serious: Yes (Hospitalization)
  Sender: FDA-Public Use
  Company Number: US-AMNEAL PHARMACEUTICALS-2021-AMRX-04327

PATIENT
  Age: 55 Year
  Sex: Female

DRUGS (1)
  1. CARVEDILOL PHOSPHATE [Suspect]
     Active Substance: CARVEDILOL PHOSPHATE
     Indication: Product used for unknown indication
     Dosage: 108 TABLETS OF CARVEDILOL AT A 6.25MG DOSE
     Route: 048

REACTIONS (5)
  - Distributive shock [Recovering/Resolving]
  - Hypocalcaemia [Recovering/Resolving]
  - Hypoalbuminaemia [Recovering/Resolving]
  - Atrioventricular block first degree [Recovering/Resolving]
  - Intentional overdose [Recovering/Resolving]
